FAERS Safety Report 9787710 (Version 2)
Quarter: 2013Q4

REPORT INFORMATION
  Report Type: Spontaneous
  Country: FR (occurrence: FR)
  Receive Date: 20131230
  Receipt Date: 20131231
  Transmission Date: 20140711
  Serious: Yes (Hospitalization, Other)
  Sender: FDA-Public Use
  Company Number: FR-JNJFOC-20131214737

PATIENT
  Age: 46 Year
  Sex: Female

DRUGS (7)
  1. XARELTO [Suspect]
     Indication: PULMONARY EMBOLISM
     Route: 048
     Dates: start: 2013
  2. XARELTO [Suspect]
     Indication: EMBOLISM VENOUS
     Route: 048
     Dates: start: 2013
  3. XARELTO [Suspect]
     Indication: VENOUS THROMBOSIS
     Route: 048
     Dates: start: 2013
  4. ENTOCORT [Concomitant]
     Indication: CROHN^S DISEASE
     Route: 065
  5. SOLIAN [Concomitant]
     Indication: PSYCHOTIC DISORDER
     Route: 065
  6. FLUOXETINE [Concomitant]
     Indication: PSYCHOTIC DISORDER
     Route: 065
  7. TEMESTA [Concomitant]
     Indication: PSYCHOTIC DISORDER
     Route: 065

REACTIONS (2)
  - Cerebrovascular accident [Not Recovered/Not Resolved]
  - Cerebral haemorrhage [Not Recovered/Not Resolved]
